FAERS Safety Report 11258466 (Version 1)
Quarter: 2015Q3

REPORT INFORMATION
  Report Type: Spontaneous
  Country: US (occurrence: None)
  Receive Date: 20150709
  Receipt Date: 20150709
  Transmission Date: 20151125
  Serious: Yes (Other)
  Sender: FDA-Public Use
  Company Number: None

PATIENT
  Age: 9 Month
  Sex: Female
  Weight: 9.7 kg

DRUGS (1)
  1. AMOXICILLIN 250/5 MG/ML SANDOZ [Suspect]
     Active Substance: AMOXICILLIN
     Route: 048
     Dates: start: 20150619, end: 20150621

REACTIONS (1)
  - Rash generalised [None]

NARRATIVE: CASE EVENT DATE: 20150621
